FAERS Safety Report 6672594-7 (Version None)
Quarter: 2010Q2

REPORT INFORMATION
  Report Type: 
  Country: None (occurrence: None)
  Receive Date: 20100408
  Receipt Date: 20100401
  Transmission Date: 20101027
  Serious: Yes (Other)
  Sender: FDA-Public Use
  Company Number: US-BAYER-201018359NA

PATIENT
  Sex: Female

DRUGS (2)
  1. YAZ [Suspect]
     Indication: DRUG USE FOR UNKNOWN INDICATION
     Route: 048
     Dates: start: 20100101
  2. UNKNOWN DRUG [Concomitant]
     Indication: POST COITAL CONTRACEPTION
     Route: 065

REACTIONS (2)
  - METRORRHAGIA [None]
  - RENAL STONE REMOVAL [None]
